FAERS Safety Report 7298694-9 (Version None)
Quarter: 2011Q1

REPORT INFORMATION
  Report Type: 
  Country: None (occurrence: None)
  Receive Date: 20110207
  Receipt Date: 20110120
  Transmission Date: 20110831
  Serious: Yes (Hospitalization, Other)
  Sender: FDA-Public Use
  Company Number: UTC-004639

PATIENT
  Age: 61 Year
  Sex: Female
  Weight: 86.36 kg

DRUGS (3)
  1. TRACLEER [Concomitant]
  2. COUMADIN [Concomitant]
  3. REMODULIN (5 MILLIGRAM/MILLILITERS, INJECTON FOR INFUSION) (TREPROSTIN [Suspect]
     Dosage: 73.44 UG/KG (0.051 UG.KG,1 IN 1 MIN),INTRAVENOUS
     Route: 042
     Dates: start: 20060213

REACTIONS (4)
  - HEADACHE [None]
  - DIARRHOEA [None]
  - DEVICE RELATED INFECTION [None]
  - PNEUMONIA [None]
